FAERS Safety Report 22013332 (Version 9)
Quarter: 2024Q2

REPORT INFORMATION
  Report Type: Spontaneous
  Country: US (occurrence: US)
  Receive Date: 20230220
  Receipt Date: 20240426
  Transmission Date: 20240715
  Serious: Yes (Other)
  Sender: FDA-Public Use
  Company Number: US-PFIZER INC-PV202300017406

PATIENT
  Age: 78 Year
  Sex: Female
  Weight: 65.76 kg

DRUGS (4)
  1. IBRANCE [Suspect]
     Active Substance: PALBOCICLIB
     Indication: Breast cancer metastatic
     Dosage: 75 MG, CYCLIC
     Route: 048
  2. IBRANCE [Suspect]
     Active Substance: PALBOCICLIB
     Dosage: DAILY FOR 14 DAYS ON AND 7 DAYS OFF, OF A 21-DAY CYCLE
     Route: 048
  3. IBRANCE [Suspect]
     Active Substance: PALBOCICLIB
     Dosage: 14 DAYS ON 7 DAYS OFF
     Dates: start: 20240327
  4. FULVESTRANT [Concomitant]
     Active Substance: FULVESTRANT
     Dosage: EVERY 28 DAYS

REACTIONS (4)
  - Neutropenia [Recovered/Resolved]
  - Off label use [Unknown]
  - Product use issue [Unknown]
  - Blood test abnormal [Recovered/Resolved]
